FAERS Safety Report 10376022 (Version 2)
Quarter: 2016Q2

REPORT INFORMATION
  Report Type: Spontaneous
  Country: JP (occurrence: JP)
  Receive Date: 20140811
  Receipt Date: 20160602
  Transmission Date: 20160815
  Serious: Yes (Hospitalization, Other)
  Sender: FDA-Public Use
  Company Number: JP-BRISTOL-MYERS SQUIBB COMPANY-21263850

PATIENT
  Age: 66 Year
  Sex: Male

DRUGS (1)
  1. KENACORT [Suspect]
     Active Substance: TRIAMCINOLONE
     Indication: FACET JOINT BLOCK
     Dosage: UNK UNK, QWK
     Route: 014

REACTIONS (2)
  - Adrenal insufficiency [Recovered/Resolved]
  - Cushing^s syndrome [Recovered/Resolved]
